FAERS Safety Report 19714748 (Version 1)
Quarter: 2021Q3

REPORT INFORMATION
  Report Type: Other
  Country: CA (occurrence: CA)
  Receive Date: 20210818
  Receipt Date: 20210818
  Transmission Date: 20211014
  Serious: Yes (Other)
  Sender: FDA-Public Use
  Company Number: CA-APOTEX-2021AP009896

PATIENT
  Age: 77 Year
  Sex: Female

DRUGS (3)
  1. VALSARTAN. [Suspect]
     Active Substance: VALSARTAN
     Indication: BLOOD PRESSURE MANAGEMENT
     Dosage: UNK
     Route: 065
  2. METFORMIN [Suspect]
     Active Substance: METFORMIN HYDROCHLORIDE
     Indication: DIABETES MELLITUS
     Dosage: 4 DOSAGE FORM, QD
     Route: 065
  3. METFORMIN R.A.N. [Suspect]
     Active Substance: METFORMIN HYDROCHLORIDE
     Indication: DIABETES MELLITUS
     Dosage: 4 DOSAGE FORM, QD
     Route: 065

REACTIONS (7)
  - Visual impairment [Unknown]
  - Feeling abnormal [Unknown]
  - Vision blurred [Unknown]
  - Vitreous floaters [Unknown]
  - Malaise [Unknown]
  - Drug ineffective [Unknown]
  - Ocular hyperaemia [Unknown]
